FAERS Safety Report 16051923 (Version 2)
Quarter: 2019Q4

REPORT INFORMATION
  Report Type: Spontaneous
  Country: US (occurrence: US)
  Receive Date: 20190308
  Receipt Date: 20191022
  Transmission Date: 20200122
  Serious: Yes (Other)
  Sender: FDA-Public Use
  Company Number: US-SA-2019SA062620

PATIENT
  Age: 44 Year
  Sex: Female
  Weight: 53.06 kg

DRUGS (1)
  1. DUPIXENT [Suspect]
     Active Substance: DUPILUMAB
     Indication: DERMATITIS ATOPIC
     Dosage: 300 MG, QOW
     Route: 058
     Dates: start: 201808

REACTIONS (11)
  - Dry skin [Unknown]
  - Rash papular [Unknown]
  - Nasopharyngitis [Recovered/Resolved]
  - Food allergy [Unknown]
  - Weight decreased [Recovered/Resolved]
  - Erythema [Unknown]
  - Skin irritation [Unknown]
  - Pneumonia [Recovered/Resolved]
  - Condition aggravated [Unknown]
  - Dry skin [Unknown]
  - Streptococcal infection [Recovered/Resolved]

NARRATIVE: CASE EVENT DATE: 201812
